FAERS Safety Report 12616597 (Version 4)
Quarter: 2017Q2

REPORT INFORMATION
  Report Type: Spontaneous
  Country: US (occurrence: US)
  Receive Date: 20160802
  Receipt Date: 20170616
  Transmission Date: 20170830
  Serious: No
  Sender: FDA-Public Use
  Company Number: US-ASTRAZENECA-2016SE68301

PATIENT
  Age: 67 Year
  Sex: Male
  Weight: 113.4 kg

DRUGS (12)
  1. BYDUREON [Suspect]
     Active Substance: EXENATIDE
     Indication: TYPE 2 DIABETES MELLITUS
     Route: 058
     Dates: start: 201207
  2. PRABAXA [Concomitant]
     Indication: ANTICOAGULANT THERAPY
     Dosage: 150.0MG UNKNOWN
     Dates: start: 201103
  3. INVAKANA [Concomitant]
     Dates: start: 201408
  4. LORTAB [Concomitant]
     Active Substance: ACETAMINOPHEN\HYDROCODONE BITARTRATE
     Dosage: 5.0MG UNKNOWN
  5. MODAFINIL. [Concomitant]
     Active Substance: MODAFINIL
     Indication: ADVERSE DRUG REACTION
     Dates: start: 201603
  6. BYDUREON [Suspect]
     Active Substance: EXENATIDE
     Indication: TYPE 2 DIABETES MELLITUS
     Route: 058
     Dates: start: 20140715
  7. TIKOSYN [Concomitant]
     Active Substance: DOFETILIDE
     Indication: CARDIAC ASSISTANCE DEVICE USER
     Dosage: 500.0MG UNKNOWN
     Dates: start: 201112
  8. DOXAZOSIN MESILATE [Concomitant]
     Active Substance: DOXAZOSIN MESYLATE
     Indication: PROSTATIC DISORDER
     Dates: start: 199911
  9. VITAMIM D-2 [Concomitant]
     Dosage: 50000 ONCE A WEEK
  10. CYCLOBENZAPRINE. [Concomitant]
     Active Substance: CYCLOBENZAPRINE
     Indication: PAIN
     Dosage: 10.0MG UNKNOWN
     Dates: start: 201601
  11. TENORMIN [Suspect]
     Active Substance: ATENOLOL
     Indication: ARRHYTHMIA
     Route: 048
     Dates: start: 201309
  12. TEMAZEPAM. [Concomitant]
     Active Substance: TEMAZEPAM
     Indication: SLEEP DISORDER
     Dosage: 30.0MG UNKNOWN
     Dates: start: 201410

REACTIONS (8)
  - Asthenia [Unknown]
  - Wrong technique in product usage process [Unknown]
  - Device issue [Unknown]
  - Headache [Unknown]
  - Rhinorrhoea [Unknown]
  - Underdose [Unknown]
  - Device malfunction [Unknown]
  - Dyspnoea [Unknown]

NARRATIVE: CASE EVENT DATE: 2014
